FAERS Safety Report 4632655-0 (Version None)
Quarter: 2005Q2

REPORT INFORMATION
  Report Type: 
  Country: None (occurrence: None)
  Receive Date: 20050331
  Receipt Date: 20040929
  Transmission Date: 20051028
  Serious: Yes (Hospitalization)
  Sender: FDA-Public Use
  Company Number: 200414679BCC

PATIENT
  Age: 90 Year
  Sex: Female
  Weight: 55.7924 kg

DRUGS (8)
  1. ALEVE (CAPLET) [Suspect]
     Indication: ARTHRITIS
     Dosage: 220 MG, BID, ORAL; 220 MG, ONCE, ORAL
     Route: 048
     Dates: start: 20040922, end: 20040923
  2. ALEVE (CAPLET) [Suspect]
     Indication: ARTHRITIS
     Dosage: 220 MG, BID, ORAL; 220 MG, ONCE, ORAL
     Route: 048
     Dates: start: 20040924
  3. ATENOLOL [Concomitant]
  4. METOPROLOL [Concomitant]
  5. PRAVACHOL [Concomitant]
  6. LANOXIN [Concomitant]
  7. PRILOSEC [Concomitant]
  8. DYAZIDE [Concomitant]

REACTIONS (1)
  - VISUAL DISTURBANCE [None]
